FAERS Safety Report 5269528-9 (Version None)
Quarter: 2007Q1

REPORT INFORMATION
  Report Type: 
  Country: None (occurrence: None)
  Receive Date: 20070314
  Receipt Date: 20070228
  Transmission Date: 20070707
  Serious: Yes (Hospitalization)
  Sender: FDA-Public Use
  Company Number: 200611IM000623

PATIENT
  Age: 68 Year
  Sex: Female
  Weight: 61.4 kg

DRUGS (9)
  1. INTERFERON GAMMA-1B [Suspect]
     Indication: IDIOPATHIC PULMONARY FIBROSIS
     Dosage: 200 UG, TIW, SUBCUTANEOUS
     Route: 058
     Dates: start: 20060222
  2. ACTONEL [Concomitant]
  3. PANTALOC [Concomitant]
  4. LASIX [Concomitant]
  5. ADVAIR DISKUS 100/50 [Concomitant]
  6. CALCIUM WITH VITAMIN D [Concomitant]
  7. SYNTHROID [Concomitant]
  8. ACETAMINOPHEN [Concomitant]
  9. SPIRONOLACTONE [Concomitant]

REACTIONS (11)
  - ANAEMIA [None]
  - COUGH [None]
  - GASTRIC ANTRAL VASCULAR ECTASIA [None]
  - GASTROINTESTINAL DISORDER [None]
  - GASTROINTESTINAL HAEMORRHAGE [None]
  - HAEMOGLOBIN DECREASED [None]
  - HAEMORRHOIDAL HAEMORRHAGE [None]
  - HAEMORRHOIDS [None]
  - HEPATIC STEATOSIS [None]
  - PORTAL HYPERTENSIVE GASTROPATHY [None]
  - TELANGIECTASIA [None]
